FAERS Safety Report 8775070 (Version 4)
Quarter: 2012Q4

REPORT INFORMATION
  Report Type: 
  Country: US (occurrence: US)
  Receive Date: 20120913
  Receipt Date: 20121017
  Transmission Date: 20130627
  Serious: No
  Sender: FDA-Public Use
  Company Number: US-VERTEX PHARMACEUTICAL INC.-2012-019914

PATIENT
  Age: 57 None
  Sex: Male
  Weight: 91 kg

DRUGS (6)
  1. INCIVEK [Suspect]
     Indication: HEPATITIS C
     Dosage: 750 mg, tid
     Route: 048
     Dates: start: 20120817
  2. PEGASYS [Suspect]
     Indication: HEPATITIS C
     Dosage: 180 ?g, qw
     Route: 058
     Dates: start: 20120817
  3. RIBAVIRIN [Suspect]
     Indication: HEPATITIS C
     Dosage: 1000 mg, qd
     Route: 048
     Dates: start: 20120817
  4. RIBAVIRIN [Suspect]
     Dosage: 600 mg AM and 800 mg PM, qd
     Route: 048
     Dates: start: 20120913
  5. PLAVIX [Concomitant]
     Dosage: 75 mg, qd
     Route: 048
  6. ASPIRIN [Concomitant]
     Indication: CARDIAC DISORDER
     Dosage: 81 mg, qd
     Route: 048

REACTIONS (15)
  - Sensory disturbance [Recovered/Resolved]
  - Heart rate irregular [Not Recovered/Not Resolved]
  - Influenza like illness [Recovered/Resolved]
  - Muscle spasms [Not Recovered/Not Resolved]
  - Headache [Recovered/Resolved]
  - Pyrexia [Recovered/Resolved]
  - Pain in extremity [Recovered/Resolved]
  - Euphoric mood [Recovered/Resolved]
  - Feeling abnormal [Unknown]
  - Fatigue [Recovered/Resolved]
  - Haematochezia [Recovered/Resolved]
  - Anal pruritus [Recovered/Resolved]
  - Pruritus [Recovered/Resolved]
  - Anorectal discomfort [Recovered/Resolved]
  - Nausea [Recovered/Resolved]
